FAERS Safety Report 24749455 (Version 1)
Quarter: 2024Q4

REPORT INFORMATION
  Report Type: Spontaneous
  Country: US (occurrence: US)
  Receive Date: 20241218
  Receipt Date: 20241218
  Transmission Date: 20250115
  Serious: No
  Sender: MERCK
  Company Number: US-GENAES-GEN-2412-8b4auN

PATIENT

DRUGS (2)
  1. KEYTRUDA [Suspect]
     Active Substance: PEMBROLIZUMAB
     Indication: Urethral cancer metastatic
     Dosage: UNK
  2. ENFORTUMAB VEDOTIN [Suspect]
     Active Substance: ENFORTUMAB VEDOTIN
     Indication: Urethral cancer metastatic

REACTIONS (1)
  - Skin toxicity [Unknown]
